FAERS Safety Report 9793040 (Version 1)
Quarter: 2013Q4

REPORT INFORMATION
  Report Type: Spontaneous
  Country: US (occurrence: None)
  Receive Date: 20131231
  Receipt Date: 20131231
  Transmission Date: 20140711
  Serious: Yes (Other)
  Sender: FDA-Public Use
  Company Number: None

PATIENT
  Age: 62 Year
  Sex: Female
  Weight: 90.72 kg

DRUGS (13)
  1. HCG [Suspect]
     Indication: APPETITE DISORDER
     Route: 058
  2. ASA [Concomitant]
  3. WELLBUTRIN [Concomitant]
  4. METOPROLOL [Concomitant]
  5. MIRAPEX [Concomitant]
  6. MULTIVITAMIN [Concomitant]
  7. B12 [Concomitant]
  8. B COMPLEX [Concomitant]
  9. C (ESTER-C) [Concomitant]
  10. E [Concomitant]
  11. D3 [Concomitant]
  12. FISH OIL [Concomitant]
  13. FLAXSEED OIL [Concomitant]

REACTIONS (2)
  - Intentional drug misuse [None]
  - Economic problem [None]
